FAERS Safety Report 4468094-5 (Version None)
Quarter: 2004Q4

REPORT INFORMATION
  Report Type: 
  Country: None (occurrence: None)
  Receive Date: 20041004
  Receipt Date: 20041004
  Transmission Date: 20050328
  Serious: Yes (Life-Threatening, Hospitalization)
  Sender: FDA-Public Use
  Company Number: None

PATIENT
  Age: 58 Year
  Sex: Male
  Weight: 92.9874 kg

DRUGS (9)
  1. VIOXX [Suspect]
     Indication: ARTHRITIS
     Dosage: 25 MG ONCE DAILY ORAL
     Route: 048
     Dates: start: 20001218, end: 20040827
  2. ZIAC [Concomitant]
  3. PAMELOR [Concomitant]
  4. ZANAFLEX [Concomitant]
  5. SKELAXIN [Concomitant]
  6. BUSPAR [Concomitant]
  7. ASPIRIN [Concomitant]
  8. CENTRUM SILVER VITAMINS [Concomitant]
  9. PROSTATA [Concomitant]

REACTIONS (2)
  - CORONARY ARTERY DISEASE [None]
  - MYOCARDIAL INFARCTION [None]
